FAERS Safety Report 6494206-8 (Version None)
Quarter: 2009Q4

REPORT INFORMATION
  Report Type: 
  Country: None (occurrence: None)
  Receive Date: 20091214
  Receipt Date: 20090121
  Transmission Date: 20100525
  Serious: No
  Sender: FDA-Public Use
  Company Number: US-BRISTOL-MYERS SQUIBB COMPANY-14478473

PATIENT
  Age: 49 Year
  Sex: Female
  Weight: 68 kg

DRUGS (7)
  1. ABILIFY [Suspect]
     Indication: BIPOLAR DISORDER
     Dates: start: 20081201
  2. ABILIFY [Suspect]
     Indication: BORDERLINE PERSONALITY DISORDER
     Dates: start: 20081201
  3. ABILIFY [Suspect]
     Indication: POST-TRAUMATIC STRESS DISORDER
     Dates: start: 20081201
  4. KLONOPIN [Concomitant]
  5. SYNTHROID [Concomitant]
  6. CYTOMEL [Concomitant]
  7. EPITOL [Concomitant]

REACTIONS (1)
  - INSOMNIA [None]
